FAERS Safety Report 10697796 (Version 1)
Quarter: 2015Q1

REPORT INFORMATION
  Report Type: Spontaneous
  Country: DE (occurrence: None)
  Receive Date: 20150106
  Receipt Date: 20150106
  Transmission Date: 20150721
  Serious: Yes (Life-Threatening, Hospitalization)
  Sender: FDA-Public Use
  Company Number: 20142698

PATIENT
  Sex: Female

DRUGS (1)
  1. METEX (METHOTREXATE DISODIUM) [Suspect]
     Active Substance: METHOTREXATE SODIUM
     Dosage: TABLET?X 5 MILLIGRAM IN 1 WEEK ?
     Dates: start: 20141219

REACTIONS (6)
  - Overdose [None]
  - Oral disorder [None]
  - Renal function test abnormal [None]
  - Blood test abnormal [None]
  - Stomatitis [None]
  - Circulatory collapse [None]
